FAERS Safety Report 22070734 (Version 2)
Quarter: 2023Q1

REPORT INFORMATION
  Report Type: Spontaneous
  Country: JP (occurrence: JP)
  Receive Date: 20230307
  Receipt Date: 20230323
  Transmission Date: 20230417
  Serious: Yes (Other)
  Sender: FDA-Public Use
  Company Number: JP-TAKEDA-2023TUS023800

PATIENT
  Age: 39 Year
  Sex: Male

DRUGS (1)
  1. LIALDA [Suspect]
     Active Substance: MESALAMINE
     Indication: Colitis ulcerative
     Dosage: 2400 MILLIGRAM, QD
     Route: 048

REACTIONS (1)
  - Diverticulitis [Recovered/Resolved]

NARRATIVE: CASE EVENT DATE: 20220701
